FAERS Safety Report 22384618 (Version 1)
Quarter: 2023Q2

REPORT INFORMATION
  Report Type: Report from Study
  Country: CA (occurrence: CA)
  Receive Date: 20230530
  Receipt Date: 20230530
  Transmission Date: 20230722
  Serious: Yes (Hospitalization)
  Sender: FDA-Public Use
  Company Number: CA-JNJFOC-20230568020

PATIENT
  Age: 14 Year
  Sex: Female
  Weight: 40 kg

DRUGS (3)
  1. REMICADE [Suspect]
     Active Substance: INFLIXIMAB
     Indication: Colitis ulcerative
     Route: 041
     Dates: start: 20211217
  2. REMICADE [Suspect]
     Active Substance: INFLIXIMAB
     Indication: Autism spectrum disorder
  3. MELATONIN [Suspect]
     Active Substance: MELATONIN
     Indication: Sedation
     Route: 065

REACTIONS (1)
  - Seizure [Recovered/Resolved]

NARRATIVE: CASE EVENT DATE: 20230424
